FAERS Safety Report 7125431-0 (Version None)
Quarter: 2010Q4

REPORT INFORMATION
  Report Type: 
  Country: None (occurrence: None)
  Receive Date: 20101129
  Receipt Date: 20101113
  Transmission Date: 20110411
  Serious: Yes (Death, Hospitalization)
  Sender: FDA-Public Use
  Company Number: HR-ROCHE-726622

PATIENT
  Sex: Male
  Weight: 75 kg

DRUGS (7)
  1. METHOXY POLYETHYLENE GLYCOL-EPOETIN BETA [Suspect]
     Dosage: FREQUENCY REPORTED QS, LAST DOSE PRIOR TO SAE:28 OCT 2010, DOSE FORM REPORTED AS PFS
     Route: 058
     Dates: start: 20090730
  2. FUROSEMID [Concomitant]
     Dates: start: 20050630
  3. ALOPURINOL [Concomitant]
     Dates: start: 20080630
  4. LACIDIPIN [Concomitant]
     Dates: start: 20090630
  5. INSULIN [Concomitant]
     Dosage: DRUG REPOTED AS ASPART INSULIN
     Dates: start: 20091221
  6. WARFARIN [Concomitant]
     Dates: start: 20100918
  7. SORBITRATE [Concomitant]
     Dates: start: 20100918

REACTIONS (2)
  - BRADYCARDIA [None]
  - PULMONARY OEDEMA [None]
